FAERS Safety Report 21017560 (Version 1)
Quarter: 2022Q2

REPORT INFORMATION
  Report Type: Spontaneous
  Country: US (occurrence: US)
  Receive Date: 20220628
  Receipt Date: 20220628
  Transmission Date: 20220720
  Serious: Yes (Hospitalization, Other)
  Sender: FDA-Public Use
  Company Number: US-BRISTOL-MYERS SQUIBB COMPANY-2022-057576

PATIENT
  Age: 72 Year
  Sex: Female

DRUGS (1)
  1. SPRYCEL [Suspect]
     Active Substance: DASATINIB
     Indication: Product used for unknown indication
     Dosage: DOSE : UNAVAILABLE;     FREQ : ONE TABLET BY MOUTH ONCE DAILY
     Route: 048

REACTIONS (5)
  - Circulatory collapse [Unknown]
  - Decreased appetite [Unknown]
  - Diarrhoea [Unknown]
  - Weight decreased [Unknown]
  - Colon injury [Recovering/Resolving]

NARRATIVE: CASE EVENT DATE: 20211201
